FAERS Safety Report 16621621 (Version 1)
Quarter: 2019Q3

REPORT INFORMATION
  Report Type: Spontaneous
  Country: DE (occurrence: DE)
  Receive Date: 20190723
  Receipt Date: 20190723
  Transmission Date: 20191004
  Serious: Yes (Death, Hospitalization)
  Sender: FDA-Public Use
  Company Number: DE-TEVA-2019-DE-1080488

PATIENT
  Age: 57 Year
  Sex: Male
  Weight: 71 kg

DRUGS (9)
  1. GEMCITABINE. [Suspect]
     Active Substance: GEMCITABINE
     Dosage: SCHEME, SOLUTION FOR INJECTION/INFUSION
     Route: 042
  2. LOPERAMID [Concomitant]
     Active Substance: LOPERAMIDE
     Dosage: 2 MG, NEED, TABLETS
     Route: 048
  3. ONDANSETRON [Concomitant]
     Active Substance: ONDANSETRON
     Dosage: 8 MG, SCHEME, TABLETS
     Route: 048
  4. PANGROL 25000 [Concomitant]
     Dosage: 25000 IU, SCHEME, CAPSULES
     Route: 048
  5. KALIUM [Concomitant]
     Active Substance: POTASSIUM CHLORIDE
     Dosage: 1 CAPSULE BY POTASSIUM, 1-1-0-0, CAPSULES
     Route: 048
  6. PANGROL 40000 [Concomitant]
     Dosage: 40000 IU, SCHEME, CAPSULES
     Route: 048
  7. NEUPOGEN 48 MIO. E. [Concomitant]
     Dosage: 48 IE, SCHEME, SOLUTION FOR INJECTION/INFUSION
     Route: 058
  8. PANTOPRAZOL [Concomitant]
     Active Substance: PANTOPRAZOLE SODIUM
     Dosage: 40 MG, 1-0-0-0, TABLETS
     Route: 048
  9. DEXAMETHASON [Concomitant]
     Active Substance: DEXAMETHASONE
     Dosage: 8 MG, SCHEME, TABLETS
     Route: 048

REACTIONS (6)
  - General physical health deterioration [Unknown]
  - Dehydration [Unknown]
  - Flank pain [Unknown]
  - Pyrexia [Unknown]
  - Productive cough [Unknown]
  - Cough [Unknown]
